FAERS Safety Report 12309902 (Version 2)
Quarter: 2016Q2

REPORT INFORMATION
  Report Type: Spontaneous
  Country: JP (occurrence: JP)
  Receive Date: 20160427
  Receipt Date: 20160513
  Transmission Date: 20160815
  Serious: Yes (Other)
  Sender: FDA-Public Use
  Company Number: JP-GLAXOSMITHKLINE-JP2016JPN042025

PATIENT
  Sex: Female
  Weight: 61 kg

DRUGS (5)
  1. UTEMERIN [Concomitant]
     Active Substance: RITODRINE
     Dosage: 15 MG, 1D
     Dates: start: 20160324, end: 20160331
  2. FOLIAMIN [Concomitant]
     Active Substance: FOLIC ACID
     Indication: VITAMIN SUPPLEMENTATION
     Dosage: 10 MG, 1D
     Dates: start: 20151015, end: 20160404
  3. DUVADILAN [Concomitant]
     Indication: ABORTION THREATENED
     Dosage: 30 MG, 1D
     Dates: start: 20151102, end: 20151109
  4. UTEMERIN [Concomitant]
     Active Substance: RITODRINE
     Indication: THREATENED LABOUR
     Dosage: 10 MG, 1D
     Dates: start: 20160317, end: 20160323
  5. LAMICTAL [Suspect]
     Active Substance: LAMOTRIGINE
     Indication: TEMPORAL LOBE EPILEPSY
     Dosage: 400 MG, 1D
     Route: 048

REACTIONS (4)
  - Threatened labour [Unknown]
  - Exposure during pregnancy [Unknown]
  - Live birth [Unknown]
  - Abortion threatened [Unknown]

NARRATIVE: CASE EVENT DATE: 2015
